FAERS Safety Report 8561075 (Version 3)
Quarter: 2015Q1

REPORT INFORMATION
  Report Type: Spontaneous
  Country: CA (occurrence: CA)
  Receive Date: 20120514
  Receipt Date: 20150204
  Transmission Date: 20150721
  Serious: Yes (Other)
  Sender: FDA-Public Use
  Company Number: CA-PFIZER INC-2012086169

PATIENT
  Age: 45 Year
  Sex: Male
  Weight: 90.7 kg

DRUGS (3)
  1. LYRICA [Suspect]
     Active Substance: PREGABALIN
     Indication: FIBROMYALGIA
     Dosage: 150 MG, 2X/DAY
     Route: 048
     Dates: start: 20110201
  2. LYRICA [Suspect]
     Active Substance: PREGABALIN
     Dosage: 300 MG, 2X/DAY
     Route: 048
     Dates: end: 20120401
  3. ASPIRIN WITH CODEINE [Concomitant]
     Indication: PAIN
     Dosage: UNK, AS NEEDED

REACTIONS (10)
  - Alopecia [Recovered/Resolved]
  - Dry skin [Recovered/Resolved]
  - Sarcoidosis [Not Recovered/Not Resolved]
  - Biotin deficiency [Unknown]
  - Eczema [Recovering/Resolving]
  - Oral herpes [Recovering/Resolving]
  - Skin irritation [Recovering/Resolving]
  - Abnormal dreams [Recovered/Resolved]
  - Therapeutic response unexpected [Unknown]
  - Pre-existing condition improved [Unknown]

NARRATIVE: CASE EVENT DATE: 2011
